FAERS Safety Report 18458860 (Version 3)
Quarter: 2021Q1

REPORT INFORMATION
  Report Type: Report from Study
  Country: US (occurrence: US)
  Receive Date: 20201103
  Receipt Date: 20210126
  Transmission Date: 20210419
  Serious: Yes (Hospitalization, Other)
  Sender: FDA-Public Use
  Company Number: US-ASTRAZENECA-2020SF04558

PATIENT
  Age: 92 Year
  Sex: Male
  Weight: 75.3 kg

DRUGS (18)
  1. CALQUENCE [Suspect]
     Active Substance: ACALABRUTINIB
     Indication: CHRONIC LYMPHOCYTIC LEUKAEMIA
     Route: 048
  2. CALQUENCE [Suspect]
     Active Substance: ACALABRUTINIB
     Indication: BLADDER CANCER
     Route: 048
     Dates: start: 20200727
  3. DILTIAZEM HCL ER [Concomitant]
     Active Substance: DILTIAZEM HYDROCHLORIDE
  4. FERROUS SULFATE. [Concomitant]
     Active Substance: FERROUS SULFATE
  5. FUROSEMIDE. [Concomitant]
     Active Substance: FUROSEMIDE
  6. ACETAMINOPHEN. [Concomitant]
     Active Substance: ACETAMINOPHEN
  7. GLIPIZIDE. [Concomitant]
     Active Substance: GLIPIZIDE
  8. GLUCOSAMINE [Concomitant]
     Active Substance: GLUCOSAMINE
  9. CALQUENCE [Suspect]
     Active Substance: ACALABRUTINIB
     Indication: CHRONIC LYMPHOCYTIC LEUKAEMIA
     Dosage: 1?100 MG
     Route: 048
     Dates: start: 20200508, end: 20200509
  10. IMBRUVICA [Concomitant]
     Active Substance: IBRUTINIB
     Indication: NEOPLASM MALIGNANT
     Dates: end: 20200617
  11. CALQUENCE [Suspect]
     Active Substance: ACALABRUTINIB
     Indication: BLADDER CANCER
     Dosage: 1?100 MG
     Route: 048
     Dates: start: 20200508, end: 20200509
  12. CALQUENCE [Suspect]
     Active Substance: ACALABRUTINIB
     Indication: CHRONIC LYMPHOCYTIC LEUKAEMIA
     Route: 048
     Dates: start: 20200727
  13. DIGOXIN. [Concomitant]
     Active Substance: DIGOXIN
  14. CALCIUM [Concomitant]
     Active Substance: CALCIUM
  15. ELIQUIS [Concomitant]
     Active Substance: APIXABAN
  16. KEYTRUDA [Concomitant]
     Active Substance: PEMBROLIZUMAB
     Indication: NEOPLASM MALIGNANT
     Dosage: 200.0MG UNKNOWN
     Dates: start: 20200922, end: 20200926
  17. CALQUENCE [Suspect]
     Active Substance: ACALABRUTINIB
     Indication: BLADDER CANCER
     Route: 048
  18. WATER PILLS [Concomitant]
     Active Substance: UNSPECIFIED INGREDIENT

REACTIONS (8)
  - Pruritus [Recovered/Resolved]
  - Nasopharyngitis [Not Recovered/Not Resolved]
  - Swelling [Recovered/Resolved]
  - Feeling abnormal [Recovered/Resolved]
  - Pneumonia [Unknown]
  - Hypotension [Unknown]
  - Gallbladder obstruction [Unknown]
  - Decreased appetite [Recovered/Resolved]

NARRATIVE: CASE EVENT DATE: 20200912
